FAERS Safety Report 5402933-6 (Version None)
Quarter: 2007Q3

REPORT INFORMATION
  Report Type: 
  Country: None (occurrence: None)
  Receive Date: 20070801
  Receipt Date: 20070720
  Transmission Date: 20080115
  Serious: Yes (Hospitalization)
  Sender: FDA-Public Use
  Company Number: US-AMGEN-KDL228867

PATIENT
  Age: 60 Year
  Sex: Male

DRUGS (3)
  1. EPOGEN [Suspect]
     Indication: DIALYSIS
     Route: 042
     Dates: start: 19980601
  2. SENSIPAR [Suspect]
     Indication: HYPERPARATHYROIDISM SECONDARY
     Route: 065
  3. IRON [Concomitant]
     Route: 042

REACTIONS (2)
  - INTESTINAL OBSTRUCTION [None]
  - THERAPEUTIC RESPONSE DECREASED [None]
